FAERS Safety Report 11926038 (Version 2)
Quarter: 2016Q1

REPORT INFORMATION
  Report Type: Spontaneous
  Country: US (occurrence: US)
  Receive Date: 20160119
  Receipt Date: 20160205
  Transmission Date: 20160526
  Serious: No
  Sender: FDA-Public Use
  Company Number: US-ASTRAZENECA-2016SE01867

PATIENT
  Age: 824 Month
  Sex: Male
  Weight: 86.2 kg

DRUGS (12)
  1. PULMICORT FLEXHALER [Suspect]
     Active Substance: BUDESONIDE
     Indication: ASTHMA
     Dosage: 180 MCG, 2 PUFFS DAILY
     Route: 055
     Dates: start: 2015
  2. FEVERFEW [Concomitant]
     Active Substance: FEVERFEW
  3. CALCIUM [Concomitant]
     Active Substance: CALCIUM
  4. PREMARIN [Concomitant]
     Active Substance: ESTROGENS, CONJUGATED
     Indication: HORMONE THERAPY
  5. PROAIR HFA [Concomitant]
     Active Substance: ALBUTEROL SULFATE
     Indication: RESPIRATORY DISORDER
     Route: 055
  6. CLARITIN [Concomitant]
     Active Substance: LORATADINE
  7. CYANOCOBALAMIN. [Concomitant]
     Active Substance: CYANOCOBALAMIN
  8. TRAMADOL. [Concomitant]
     Active Substance: TRAMADOL
     Indication: MUSCULOSKELETAL DISCOMFORT
  9. BABY ASPIRIN [Concomitant]
     Active Substance: ASPIRIN
  10. MAXMLT [Concomitant]
     Indication: MIGRAINE
  11. VITAMINS NOS [Concomitant]
     Active Substance: VITAMINS
  12. GENERIC TUMS [Concomitant]

REACTIONS (8)
  - Wheezing [Unknown]
  - Device malfunction [Unknown]
  - Rotator cuff syndrome [Unknown]
  - Device failure [Unknown]
  - Cough [Unknown]
  - Intentional device misuse [Unknown]
  - Periarthritis [Unknown]
  - Tendonitis [Unknown]

NARRATIVE: CASE EVENT DATE: 201512
